FAERS Safety Report 23725116 (Version 4)
Quarter: 2024Q2

REPORT INFORMATION
  Report Type: Report from Study
  Country: US (occurrence: US)
  Receive Date: 20240410
  Receipt Date: 20240613
  Transmission Date: 20240716
  Serious: Yes (Hospitalization, Other)
  Sender: FDA-Public Use
  Company Number: US-TAKEDA-2024TUS028609

PATIENT
  Sex: Female

DRUGS (3)
  1. FRUQUINTINIB [Suspect]
     Active Substance: FRUQUINTINIB
     Indication: Gastric cancer
     Dosage: 5 MILLIGRAM, QD
     Route: 048
  2. FRUQUINTINIB [Suspect]
     Active Substance: FRUQUINTINIB
     Indication: Lung neoplasm malignant
     Dosage: 5 MILLIGRAM, QD
     Route: 048
     Dates: start: 202403
  3. FRUQUINTINIB [Suspect]
     Active Substance: FRUQUINTINIB
     Indication: Hepatic cancer
     Dosage: 5 MILLIGRAM, QD
     Route: 048
     Dates: start: 202403

REACTIONS (14)
  - Neuropathy peripheral [Not Recovered/Not Resolved]
  - Back pain [Unknown]
  - Gastric cancer recurrent [Unknown]
  - Mouth haemorrhage [Not Recovered/Not Resolved]
  - Gingival bleeding [Not Recovered/Not Resolved]
  - Panic attack [Recovering/Resolving]
  - Anxiety [Recovering/Resolving]
  - Abdominal pain upper [Recovering/Resolving]
  - Feeling abnormal [Recovering/Resolving]
  - Gingival pain [Recovering/Resolving]
  - Decreased appetite [Recovering/Resolving]
  - Asthenia [Unknown]
  - Stomatitis [Not Recovered/Not Resolved]
  - Off label use [Unknown]
